FAERS Safety Report 12588044 (Version 2)
Quarter: 2016Q3

REPORT INFORMATION
  Report Type: Spontaneous
  Country: JP (occurrence: JP)
  Receive Date: 20160725
  Receipt Date: 20160822
  Transmission Date: 20161109
  Serious: Yes (Death)
  Sender: FDA-Public Use
  Company Number: JP-SA-2016SA133328

PATIENT
  Age: 80 Year
  Sex: Male
  Weight: 57 kg

DRUGS (3)
  1. TAXOTERE [Suspect]
     Active Substance: DOCETAXEL
     Indication: LUNG NEOPLASM MALIGNANT
     Route: 042
     Dates: start: 20071203, end: 20071203
  2. TAXOTERE [Suspect]
     Active Substance: DOCETAXEL
     Indication: LUNG NEOPLASM MALIGNANT
     Route: 042
     Dates: start: 20071119, end: 20071119
  3. TAXOTERE [Suspect]
     Active Substance: DOCETAXEL
     Indication: LUNG NEOPLASM MALIGNANT
     Dosage: FREQUENCY EVERY 2 MONTH
     Route: 042
     Dates: start: 20071105, end: 20071105

REACTIONS (3)
  - Pulmonary toxicity [Fatal]
  - Dyspnoea [Unknown]
  - Condition aggravated [Fatal]

NARRATIVE: CASE EVENT DATE: 20071217
